FAERS Safety Report 10007970 (Version 2)
Quarter: 2014Q4

REPORT INFORMATION
  Report Type: Spontaneous
  Country: US (occurrence: US)
  Receive Date: 20140313
  Receipt Date: 20141127
  Transmission Date: 20150528
  Serious: Yes (Death)
  Sender: FDA-Public Use
  Company Number: US-BRISTOL-MYERS SQUIBB COMPANY-20402061

PATIENT
  Age: 71 Year
  Sex: Male
  Weight: 82.9 kg

DRUGS (21)
  1. MONOPRIL [Concomitant]
     Active Substance: FOSINOPRIL SODIUM
  2. FERROUS SULFATE [Concomitant]
     Active Substance: FERROUS SULFATE\FERROUS SULFATE, DRIED
  3. BYETTA [Suspect]
     Active Substance: EXENATIDE
     Dates: start: 200603, end: 201203
  4. CARDURA [Concomitant]
     Active Substance: DOXAZOSIN MESYLATE
  5. BENADRYL [Concomitant]
     Active Substance: DIPHENHYDRAMINE HYDROCHLORIDE
  6. GERITOL [Concomitant]
     Active Substance: MINERALS\VITAMINS
  7. LATANOPROST. [Concomitant]
     Active Substance: LATANOPROST
  8. PHENIRAMINE+NAPHAZOLINE [Concomitant]
  9. BECONASE AQ [Concomitant]
     Active Substance: BECLOMETHASONE DIPROPIONATE MONOHYDRATE
  10. IRON [Concomitant]
     Active Substance: IRON
  11. MEGACE [Concomitant]
     Active Substance: MEGESTROL ACETATE
  12. HYDROXYZINE HCL [Concomitant]
     Active Substance: HYDROXYZINE HYDROCHLORIDE
  13. PRILOSEC [Concomitant]
     Active Substance: OMEPRAZOLE MAGNESIUM
  14. FLONASE [Concomitant]
     Active Substance: FLUTICASONE PROPIONATE
  15. ZOCOR [Concomitant]
     Active Substance: SIMVASTATIN
  16. FLOMAX [Concomitant]
     Active Substance: TAMSULOSIN HYDROCHLORIDE
  17. HUMALOG [Concomitant]
     Active Substance: INSULIN LISPRO
  18. LANTUS [Concomitant]
     Active Substance: INSULIN GLARGINE
  19. METFORMIN HCL [Concomitant]
     Active Substance: METFORMIN HYDROCHLORIDE
  20. GLUCERNA [Concomitant]
     Active Substance: AMINO ACIDS\DEXTROSE\ELECTROLYTES NOS\SOYBEAN OIL\VITAMINS
  21. COLACE [Concomitant]
     Active Substance: DOCUSATE SODIUM

REACTIONS (1)
  - Pancreatic carcinoma [Fatal]

NARRATIVE: CASE EVENT DATE: 20120306
